FAERS Safety Report 7427872-0 (Version None)
Quarter: 2011Q2

REPORT INFORMATION
  Report Type: 
  Country: None (occurrence: None)
  Receive Date: 20110421
  Receipt Date: 20110408
  Transmission Date: 20111010
  Serious: Yes (Other)
  Sender: FDA-Public Use
  Company Number: GR-ELI_LILLY_AND_COMPANY-GR201103006729

PATIENT
  Age: 75 Year
  Sex: Female
  Weight: 50 kg

DRUGS (2)
  1. FORTEO [Suspect]
     Indication: OSTEOPOROSIS
     Dosage: 20 UG, QD
     Route: 058
     Dates: start: 20100101
  2. LEXOTANIL [Concomitant]
     Indication: ANXIETY
     Dosage: 1.5 MG, QD
     Route: 048

REACTIONS (1)
  - BLOOD ALKALINE PHOSPHATASE INCREASED [None]
